FAERS Safety Report 4315637-8 (Version None)
Quarter: 2004Q1

REPORT INFORMATION
  Report Type: 
  Country: None (occurrence: None)
  Receive Date: 20040309
  Receipt Date: 20040224
  Transmission Date: 20041129
  Serious: Yes (Hospitalization)
  Sender: FDA-Public Use
  Company Number: 04P-163-0251629-00

PATIENT
  Age: 55 Year
  Sex: Female
  Weight: 69.4003 kg

DRUGS (7)
  1. HUMIRA [Suspect]
     Indication: POLYARTHRITIS
     Dosage: 40 MG, ONCE, SUBCUTANEOUS
     Route: 058
     Dates: start: 20040121, end: 20040122
  2. MORPHINE SULFATE [Concomitant]
  3. GABAPENTIN [Concomitant]
  4. METHOTREXATE [Concomitant]
  5. ALENDRONATE SODIUM [Concomitant]
  6. MULTIVITAMIN [Concomitant]
  7. FOLIC ACID [Concomitant]

REACTIONS (6)
  - DYSARTHRIA [None]
  - HEADACHE [None]
  - MEMORY IMPAIRMENT [None]
  - PARAESTHESIA [None]
  - SWELLING FACE [None]
  - VISION BLURRED [None]
